FAERS Safety Report 14023763 (Version 1)
Quarter: 2017Q3

REPORT INFORMATION
  Report Type: Spontaneous
  Country: US (occurrence: US)
  Receive Date: 20170929
  Receipt Date: 20170929
  Transmission Date: 20171128
  Serious: No
  Sender: FDA-Public Use
  Company Number: US-UPSHER-SMITH LABORATORIES, INC.-16002113

PATIENT
  Age: 76 Year
  Sex: Male

DRUGS (1)
  1. POTASSIUM CHLORIDE MICRO-DISPERSIBLE [Suspect]
     Active Substance: POTASSIUM CHLORIDE
     Indication: BLOOD POTASSIUM DECREASED
     Dosage: 10 MEQ, TID
     Route: 048
     Dates: start: 201609, end: 201610

REACTIONS (1)
  - Throat irritation [None]

NARRATIVE: CASE EVENT DATE: 201609
